FAERS Safety Report 23687177 (Version 1)
Quarter: 2024Q1

REPORT INFORMATION
  Report Type: Spontaneous
  Country: JP (occurrence: JP)
  Receive Date: 20240329
  Receipt Date: 20240329
  Transmission Date: 20240410
  Serious: Yes (Other)
  Sender: FDA-Public Use
  Company Number: JP-AMGEN-JPNSP2024060373

PATIENT

DRUGS (3)
  1. BLINCYTO [Suspect]
     Active Substance: BLINATUMOMAB
     Indication: Acute lymphocytic leukaemia
     Dosage: UNK, PICC
     Route: 042
  2. BLINCYTO [Suspect]
     Active Substance: BLINATUMOMAB
     Dosage: UNK, PICC DOSE INCREASED
     Route: 042
  3. BLINCYTO [Suspect]
     Active Substance: BLINATUMOMAB
     Dosage: 9 MICROGRAM, QD CONTINOUS DRIP INFUSION PICC
     Route: 042
     Dates: start: 20240313

REACTIONS (3)
  - Visual agnosia [Unknown]
  - Nervous system disorder [Not Recovered/Not Resolved]
  - Dysgraphia [Unknown]

NARRATIVE: CASE EVENT DATE: 20240319
